FAERS Safety Report 7971068-0 (Version None)
Quarter: 2011Q4

REPORT INFORMATION
  Report Type: 
  Country: None (occurrence: None)
  Receive Date: 20111212
  Receipt Date: 20111201
  Transmission Date: 20120403
  Serious: Yes (Death, Hospitalization, Other)
  Sender: FDA-Public Use
  Company Number: JP-GENZYME-THYM-1002953

PATIENT
  Sex: Male
  Weight: 58 kg

DRUGS (17)
  1. FLUDARA [Concomitant]
     Indication: BONE MARROW CONDITIONING REGIMEN
     Dosage: UNK
     Route: 065
     Dates: start: 20110324, end: 20110327
  2. METHYLPREDNISOLONE SODIUM SUCCINATE [Concomitant]
     Indication: PREMEDICATION
     Dosage: UNK
     Route: 065
     Dates: start: 20110323, end: 20110518
  3. BIAPENEM [Concomitant]
     Indication: INFECTION PROPHYLAXIS
     Dosage: UNK
     Route: 065
     Dates: start: 20110407, end: 20110421
  4. ACYCLOVIR [Concomitant]
     Indication: ANTIVIRAL PROPHYLAXIS
     Dosage: UNK
     Route: 065
     Dates: start: 20110202, end: 20110508
  5. THYMOGLOBULIN [Suspect]
     Indication: BONE MARROW CONDITIONING REGIMEN
     Dosage: 116.6 MG, QD
     Route: 042
     Dates: start: 20110322, end: 20110323
  6. FILGRASTIM [Concomitant]
     Indication: INFECTION PROPHYLAXIS
     Dosage: UNK
     Route: 065
     Dates: start: 20110406, end: 20110518
  7. THYMOGLOBULIN [Suspect]
     Indication: ACUTE GRAFT VERSUS HOST DISEASE
     Dosage: 72 MG, QD
     Route: 042
     Dates: start: 20110428, end: 20110428
  8. MELPHALAN HYDROCHLORIDE [Concomitant]
     Indication: BONE MARROW CONDITIONING REGIMEN
     Dosage: UNK
     Route: 065
     Dates: start: 20110328, end: 20110328
  9. VORICONAZOLE [Concomitant]
     Indication: ANTIFUNGAL PROPHYLAXIS
     Dosage: UNK
     Route: 065
     Dates: start: 20110326, end: 20110508
  10. METHYLPREDNISOLONE SODIUM SUCCINATE [Concomitant]
     Dosage: UNK
     Route: 065
     Dates: start: 20110412, end: 20110518
  11. PLATELETS [Concomitant]
     Indication: MYELODYSPLASTIC SYNDROME
     Dosage: UNK
     Route: 065
     Dates: start: 20100601, end: 20110518
  12. HUMAN RED BLOOD CELLS [Concomitant]
     Indication: MYELODYSPLASTIC SYNDROME
     Dosage: UNK
     Route: 065
     Dates: start: 20100601, end: 20110518
  13. MEROPENEM [Concomitant]
     Indication: INFECTION PROPHYLAXIS
     Dosage: UNK
     Route: 065
     Dates: start: 20110509, end: 20110518
  14. MICAFUNGIN SODIUM [Concomitant]
     Indication: ANTIFUNGAL PROPHYLAXIS
     Dosage: UNK
     Route: 065
     Dates: start: 20110509, end: 20110518
  15. THYMOGLOBULIN [Suspect]
     Dosage: 144 MG, QD
     Route: 042
     Dates: start: 20110511, end: 20110511
  16. VORICONAZOLE [Concomitant]
     Dosage: UNK
     Route: 065
     Dates: start: 20110427, end: 20110508
  17. TACROLIMUS [Concomitant]
     Indication: PROPHYLAXIS AGAINST GRAFT VERSUS HOST DISEASE
     Dosage: UNK
     Route: 065
     Dates: start: 20110404, end: 20110518

REACTIONS (5)
  - GRAFT VERSUS HOST DISEASE IN LIVER [None]
  - MYELODYSPLASTIC SYNDROME [None]
  - DISSEMINATED INTRAVASCULAR COAGULATION [None]
  - ACUTE GRAFT VERSUS HOST DISEASE [None]
  - CYTOMEGALOVIRUS VIRAEMIA [None]
